FAERS Safety Report 20985573 (Version 1)
Quarter: 2022Q2

REPORT INFORMATION
  Report Type: Spontaneous
  Country: FR (occurrence: FR)
  Receive Date: 20220621
  Receipt Date: 20220621
  Transmission Date: 20220721
  Serious: Yes (Other)
  Sender: FDA-Public Use
  Company Number: None

PATIENT
  Age: 71 Year
  Sex: Female
  Weight: 62 kg

DRUGS (1)
  1. LUTATHERA [Suspect]
     Active Substance: LUTETIUM OXODOTREOTIDE LU-177
     Indication: Small intestine neuroendocrine tumour
     Dosage: 7400 MBQ, QD (370 MBQ/ML, SOLUTION POUR PERFUSION)
     Route: 042
     Dates: start: 20210721, end: 20220119

REACTIONS (2)
  - Tooth loss [Not Recovered/Not Resolved]
  - Gingival recession [Not Recovered/Not Resolved]
